FAERS Safety Report 22220888 (Version 1)
Quarter: 2023Q2

REPORT INFORMATION
  Report Type: Spontaneous
  Country: US (occurrence: US)
  Receive Date: 20230418
  Receipt Date: 20230418
  Transmission Date: 20230721
  Serious: No
  Sender: FDA-Public Use
  Company Number: US-AMGEN-USASP2023063881

PATIENT
  Age: 69 Year
  Sex: Male

DRUGS (3)
  1. KYPROLIS [Suspect]
     Active Substance: CARFILZOMIB
     Indication: Product used for unknown indication
     Dosage: 100 MILLIGRAM, 10 MG VIAL
     Route: 065
  2. KYPROLIS [Suspect]
     Active Substance: CARFILZOMIB
     Dosage: 100 MILLIGRAM, 30 MG VIAL
     Route: 065
  3. KYPROLIS [Suspect]
     Active Substance: CARFILZOMIB
     Dosage: 100 MILLIGRAM,  60 MG VIAL
     Route: 065

REACTIONS (1)
  - Intercepted product administration error [Unknown]

NARRATIVE: CASE EVENT DATE: 20230412
